FAERS Safety Report 18595139 (Version 1)
Quarter: 2020Q4

REPORT INFORMATION
  Report Type: Spontaneous
  Country: BR (occurrence: BR)
  Receive Date: 20201209
  Receipt Date: 20201209
  Transmission Date: 20210114
  Serious: Yes (Other)
  Sender: FDA-Public Use
  Company Number: NVSC2020BR318772

PATIENT
  Age: 82 Year
  Sex: Female
  Weight: 62 kg

DRUGS (4)
  1. DIOVAN [Suspect]
     Active Substance: VALSARTAN
     Dosage: 320+5MG (ONCE IN MORNING AND ONCE IN EVENING), BID
     Route: 048
     Dates: start: 202009
  2. DIOVAN [Suspect]
     Active Substance: VALSARTAN
     Indication: PRODUCT USED FOR UNKNOWN INDICATION
     Dosage: 320+5MG, BID (ONCE IN MORNING AND ONCE IN EVENING) STARTED 6 YEARS AGO
     Route: 048
  3. ALPRAZOLAMS [Concomitant]
     Indication: INSOMNIA
     Dosage: 1 DF (2 YEARS AGO)
     Route: 048
  4. ATENOLOL. [Suspect]
     Active Substance: ATENOLOL
     Dosage: 25 MG, BID ONCE IN MORNING AND ONCE IN EVENING (2 YEARS AGO)
     Route: 048

REACTIONS (8)
  - Hypotension [Recovered/Resolved]
  - Osteoporosis [Not Recovered/Not Resolved]
  - Pain [Not Recovered/Not Resolved]
  - Low density lipoprotein increased [Recovered/Resolved]
  - Arthralgia [Not Recovered/Not Resolved]
  - Hypertension [Recovered/Resolved]
  - Blood pressure abnormal [Recovering/Resolving]
  - Fibromyalgia [Not Recovered/Not Resolved]

NARRATIVE: CASE EVENT DATE: 202009
